FAERS Safety Report 19153517 (Version 1)
Quarter: 2021Q2

REPORT INFORMATION
  Report Type: Spontaneous
  Country: US (occurrence: US)
  Receive Date: 20210419
  Receipt Date: 20210419
  Transmission Date: 20210717
  Serious: No
  Sender: FDA-Public Use
  Company Number: US-KVK-TECH, INC-20210100010

PATIENT
  Age: 49 Year
  Sex: Female
  Weight: 115.19 kg

DRUGS (1)
  1. PHENTERMINE HYDROCHLORIDE TABLETS, USP [Suspect]
     Active Substance: PHENTERMINE HYDROCHLORIDE
     Indication: WEIGHT DECREASED
     Dosage: 1 TABLET DAILY
     Route: 048
     Dates: start: 20210105

REACTIONS (6)
  - Dry skin [Not Recovered/Not Resolved]
  - Adverse reaction [Not Recovered/Not Resolved]
  - Pruritus [Not Recovered/Not Resolved]
  - Rash [Not Recovered/Not Resolved]
  - Erythema [Not Recovered/Not Resolved]
  - Product physical issue [Unknown]

NARRATIVE: CASE EVENT DATE: 202101
